FAERS Safety Report 6230671-9 (Version None)
Quarter: 2009Q2

REPORT INFORMATION
  Report Type: 
  Country: None (occurrence: None)
  Receive Date: 20090616
  Receipt Date: 20090609
  Transmission Date: 20091009
  Serious: Yes (Death, Hospitalization)
  Sender: FDA-Public Use
  Company Number: US-CELGENEUS-163-21880-09060726

PATIENT
  Sex: Female

DRUGS (2)
  1. REVLIMID [Suspect]
     Indication: MULTIPLE MYELOMA
     Dosage: 20-25 MG
     Route: 048
     Dates: start: 20090517, end: 20090601
  2. REVLIMID [Suspect]
     Route: 048
     Dates: start: 20090419, end: 20090501

REACTIONS (2)
  - PNEUMONIA [None]
  - RENAL FAILURE [None]
